FAERS Safety Report 10040507 (Version 1)
Quarter: 2014Q1

REPORT INFORMATION
  Report Type: Spontaneous
  Country: US (occurrence: US)
  Receive Date: 20140327
  Receipt Date: 20140327
  Transmission Date: 20141002
  Serious: No
  Sender: FDA-Public Use
  Company Number: US-009507513-1403USA009500

PATIENT
  Age: 56 Year
  Sex: Female

DRUGS (4)
  1. ASMANEX TWISTHALER [Suspect]
     Indication: SINUSITIS
     Dosage: 1 DOSE TWICE A DAY
     Route: 055
     Dates: start: 201403
  2. ASMANEX TWISTHALER [Suspect]
     Indication: COUGH
     Dosage: 1 DOSE ONCE A DAY
     Route: 055
     Dates: start: 20140304, end: 201403
  3. FLUTICASONE [Concomitant]
     Route: 045
  4. TUSSICAPS [Concomitant]

REACTIONS (5)
  - Candida infection [Not Recovered/Not Resolved]
  - Chest discomfort [Not Recovered/Not Resolved]
  - Dyspnoea [Not Recovered/Not Resolved]
  - Cough [Not Recovered/Not Resolved]
  - Product quality issue [Unknown]
